FAERS Safety Report 5747936-7 (Version None)
Quarter: 2008Q2

REPORT INFORMATION
  Report Type: 
  Country: None (occurrence: None)
  Receive Date: 20080523
  Receipt Date: 20080515
  Transmission Date: 20081010
  Serious: Yes (Congenital Anomaly)
  Sender: FDA-Public Use
  Company Number: GB-ABBOTT-08P-167-0441194-00

PATIENT
  Sex: Female

DRUGS (2)
  1. VALPROIC ACID [Suspect]
     Indication: DRUG EXPOSURE DURING PREGNANCY
     Route: 064
  2. FOLIC ACID [Concomitant]
     Indication: DRUG EXPOSURE DURING PREGNANCY
     Route: 064

REACTIONS (26)
  - ABNORMAL BEHAVIOUR [None]
  - AGGRESSION [None]
  - ANOMALY OF EXTERNAL EAR CONGENITAL [None]
  - ASOCIAL BEHAVIOUR [None]
  - BALANCE DISORDER [None]
  - BIRTH MARK [None]
  - CONGENITAL FOOT MALFORMATION [None]
  - CONGENITAL HAIR DISORDER [None]
  - CONGENITAL NOSE MALFORMATION [None]
  - COORDINATION ABNORMAL [None]
  - DISTURBANCE IN ATTENTION [None]
  - DRUG EXPOSURE DURING PREGNANCY [None]
  - DYSMORPHISM [None]
  - FOETAL ANTICONVULSANT SYNDROME [None]
  - HYPERSOMNIA [None]
  - HYPOKINESIA [None]
  - INCREASED TENDENCY TO BRUISE [None]
  - JOINT INSTABILITY [None]
  - LIP DISORDER [None]
  - NEONATAL DISORDER [None]
  - PECTUS EXCAVATUM [None]
  - SCREAMING [None]
  - SKULL MALFORMATION [None]
  - SOCIAL FEAR [None]
  - SPEECH DISORDER DEVELOPMENTAL [None]
  - STRABISMUS CONGENITAL [None]
